FAERS Safety Report 19182507 (Version 2)
Quarter: 2021Q2

REPORT INFORMATION
  Report Type: Other
  Country: DE (occurrence: DE)
  Receive Date: 20210427
  Receipt Date: 20210609
  Transmission Date: 20210717
  Serious: No
  Sender: FDA-Public Use
  Company Number: DE-ROCHE-2348962

PATIENT
  Age: 42 Year
  Sex: Female
  Weight: 125 kg

DRUGS (14)
  1. OCREVUS [Suspect]
     Active Substance: OCRELIZUMAB
     Route: 042
     Dates: start: 20190709
  2. OCREVUS [Suspect]
     Active Substance: OCRELIZUMAB
     Route: 042
  3. PRAMIPEXOL [Concomitant]
     Active Substance: PRAMIPEXOLE
  4. RABEPRAZOL [Concomitant]
     Active Substance: RABEPRAZOLE
     Dates: start: 20200115
  5. OCREVUS [Suspect]
     Active Substance: OCRELIZUMAB
     Indication: RELAPSING-REMITTING MULTIPLE SCLEROSIS
     Dosage: ON 03/DEC/2019, SHE RECEIVED OCRELIZUMAB INFUSION.
     Route: 042
     Dates: start: 20190625
  6. RANITIDINE. [Concomitant]
     Active Substance: RANITIDINE
  7. CORTISONE [Suspect]
     Active Substance: CORTISONE
     Indication: PRODUCT USED FOR UNKNOWN INDICATION
     Route: 065
     Dates: start: 20190709
  8. L?THYROXINE [Concomitant]
     Active Substance: LEVOTHYROXINE
  9. RABEPRAZOL [Concomitant]
     Active Substance: RABEPRAZOLE
  10. RABEPRAZOL [Concomitant]
     Active Substance: RABEPRAZOLE
     Dates: start: 20200101
  11. OCREVUS [Suspect]
     Active Substance: OCRELIZUMAB
     Dosage: 3RD MAINTENANCE INFUSION
     Route: 042
     Dates: start: 20210309
  12. RANITIDINE. [Concomitant]
     Active Substance: RANITIDINE
     Dates: start: 20200101
  13. RANITIDINE. [Concomitant]
     Active Substance: RANITIDINE
     Dates: start: 20200115
  14. PANTOPRAZOLE [Concomitant]
     Active Substance: PANTOPRAZOLE

REACTIONS (24)
  - Premature menopause [Unknown]
  - Tenosynovitis [Recovered/Resolved]
  - Sleep disorder [Not Recovered/Not Resolved]
  - Dysphagia [Recovered/Resolved]
  - Hot flush [Recovered/Resolved]
  - Skin burning sensation [Recovered/Resolved]
  - Food craving [Recovered/Resolved]
  - Asthenia [Recovered/Resolved]
  - Vomiting [Recovered/Resolved]
  - Food craving [Recovered/Resolved]
  - COVID-19 [Recovering/Resolving]
  - Body temperature increased [Recovered/Resolved]
  - Erythema [Recovered/Resolved]
  - Blood pressure increased [Recovered/Resolved]
  - Irritability [Recovered/Resolved]
  - Blood pressure increased [Recovered/Resolved]
  - Night sweats [Recovered/Resolved]
  - Malaise [Recovered/Resolved]
  - Nasopharyngitis [Recovered/Resolved]
  - Diarrhoea [Recovered/Resolved]
  - Throat irritation [Recovered/Resolved]
  - Fatigue [Recovered/Resolved]
  - Oesophagitis [Recovered/Resolved]
  - Hypersensitivity [Recovered/Resolved]

NARRATIVE: CASE EVENT DATE: 20190625
